FAERS Safety Report 14171818 (Version 1)
Quarter: 2017Q4

REPORT INFORMATION
  Report Type: Other
  Country: GB (occurrence: MA)
  Receive Date: 20171108
  Receipt Date: 20171108
  Transmission Date: 20180321
  Serious: Yes (Death, Life-Threatening, Other)
  Sender: FDA-Public Use
  Company Number: MA-INTERNATIONAL MEDICATION SYSTEMS, LIMITED-2033577

PATIENT
  Age: 22 Year
  Sex: Female
  Weight: 50 kg

DRUGS (6)
  1. IMMUNOGLOBULIN IV [Concomitant]
     Active Substance: HUMAN IMMUNOGLOBULIN G
  2. POTASSIUM CHLORIDE. [Concomitant]
     Active Substance: POTASSIUM CHLORIDE
     Route: 041
  3. EPINEPHRINE INFUSION [Suspect]
     Active Substance: EPINEPHRINE
  4. POTASSIUM CHLORIDE. [Concomitant]
     Active Substance: POTASSIUM CHLORIDE
     Route: 041
  5. MAGNESIUM CHLORIDE. [Concomitant]
     Active Substance: MAGNESIUM CHLORIDE
     Route: 042
  6. MAGNESIUM CHLORIDE. [Concomitant]
     Active Substance: MAGNESIUM CHLORIDE
     Route: 042

REACTIONS (6)
  - Cardiac arrest [Fatal]
  - Maternal exposure during pregnancy [Fatal]
  - Death [Fatal]
  - Hypokalaemia [Fatal]
  - Condition aggravated [Fatal]
  - Ventricular fibrillation [Fatal]
